FAERS Safety Report 6959461-6 (Version None)
Quarter: 2010Q3

REPORT INFORMATION
  Report Type: 
  Country: None (occurrence: None)
  Receive Date: 20100827
  Receipt Date: 20100818
  Transmission Date: 20110219
  Serious: Yes (Death)
  Sender: FDA-Public Use
  Company Number: ALK_01401_2010

PATIENT

DRUGS (1)
  1. VIVITROL [Suspect]
     Indication: PRODUCT USED FOR UNKNOWN INDICATION
     Dosage: (INTRAMUSCULAR)
     Route: 030

REACTIONS (1)
  - DEATH [None]
